FAERS Safety Report 20693608 (Version 1)
Quarter: 2022Q2

REPORT INFORMATION
  Report Type: Spontaneous
  Country: AU (occurrence: AU)
  Receive Date: 20220411
  Receipt Date: 20220411
  Transmission Date: 20220720
  Serious: Yes (Other)
  Sender: FDA-Public Use
  Company Number: AU-SA-SAC20220407001590

PATIENT
  Age: 85 Year
  Sex: Male

DRUGS (3)
  1. GLYBURIDE [Suspect]
     Active Substance: GLYBURIDE
     Dosage: 5 MG, QD
  2. GLUCAGON [Suspect]
     Active Substance: GLUCAGON
     Dosage: UNK
  3. DEXTROSE [Concomitant]
     Active Substance: DEXTROSE
     Dosage: UNK

REACTIONS (4)
  - Renal impairment [Unknown]
  - Altered state of consciousness [Unknown]
  - Confusional state [Unknown]
  - Hypoglycaemia [Unknown]

NARRATIVE: CASE EVENT DATE: 20210713
